FAERS Safety Report 15653881 (Version 1)
Quarter: 2018Q4

REPORT INFORMATION
  Report Type: Spontaneous
  Country: US (occurrence: US)
  Receive Date: 20181124
  Receipt Date: 20181124
  Transmission Date: 20190205
  Serious: Yes (Hospitalization, Disabling)
  Sender: FDA-Public Use
  Company Number: None

PATIENT
  Age: 37 Year
  Sex: Female
  Weight: 96.75 kg

DRUGS (4)
  1. VITAMIN D [Concomitant]
     Active Substance: CHOLECALCIFEROL
  2. SPIRONOLACTONE. [Suspect]
     Active Substance: SPIRONOLACTONE
     Indication: POLYCYSTIC OVARIES
     Dosage: ?          QUANTITY:2 CAPSULE(S);?
     Route: 048
     Dates: start: 20171117, end: 20180228
  3. MSM SUPPLEMENT [Concomitant]
  4. FISH OIL [Concomitant]
     Active Substance: FISH OIL

REACTIONS (7)
  - Off label use [None]
  - Dizziness [None]
  - Abdominal distension [None]
  - Blood pressure increased [None]
  - Palpitations [None]
  - Skin burning sensation [None]
  - Alopecia [None]

NARRATIVE: CASE EVENT DATE: 20180228
